FAERS Safety Report 6987843-5 (Version None)
Quarter: 2010Q3

REPORT INFORMATION
  Report Type: 
  Country: None (occurrence: None)
  Receive Date: 20100830
  Receipt Date: 20091210
  Transmission Date: 20110219
  Serious: Yes (Hospitalization)
  Sender: FDA-Public Use
  Company Number: CIP09003491

PATIENT
  Age: 29 Year
  Sex: Male

DRUGS (1)
  1. ASACOL HD [Suspect]
     Indication: COLITIS ULCERATIVE
     Dosage: 1600 MG THREE TIMES DAILY, ORAL
     Route: 048
     Dates: start: 20090901, end: 20091001

REACTIONS (2)
  - ABDOMINAL PAIN [None]
  - PANCREATITIS [None]
